FAERS Safety Report 15053488 (Version 3)
Quarter: 2018Q3

REPORT INFORMATION
  Report Type: Report from Study
  Country: None (occurrence: RO)
  Receive Date: 20180622
  Receipt Date: 20180716
  Transmission Date: 20181010
  Serious: Yes (Death, Hospitalization)
  Sender: FDA-Public Use
  Company Number: RO-ABBVIE-18K-135-2396347-00

PATIENT
  Age: 59 Year
  Sex: Female

DRUGS (5)
  1. HUMIRA [Suspect]
     Active Substance: ADALIMUMAB
     Indication: CROHN^S DISEASE
     Route: 058
     Dates: start: 20161206, end: 20180212
  2. FOLIC ACID. [Concomitant]
     Active Substance: FOLIC ACID
     Indication: CROHN^S DISEASE
     Route: 048
     Dates: start: 201607, end: 20180212
  3. PREDNISON [Concomitant]
     Active Substance: PREDNISONE
     Indication: CROHN^S DISEASE
     Route: 048
     Dates: start: 201607, end: 20180212
  4. SALOFALK [Concomitant]
     Active Substance: MESALAMINE
     Indication: CROHN^S DISEASE
     Route: 048
     Dates: start: 201607, end: 20180212
  5. IMURAN [Concomitant]
     Active Substance: AZATHIOPRINE
     Indication: CROHN^S DISEASE
     Route: 048
     Dates: start: 201607, end: 20180212

REACTIONS (18)
  - Cardiopulmonary failure [Fatal]
  - Hypoproteinaemia [Fatal]
  - Flatulence [Not Recovered/Not Resolved]
  - Intestinal obstruction [Not Recovered/Not Resolved]
  - Ileostomy [Unknown]
  - Food allergy [Fatal]
  - Septic shock [Fatal]
  - Seizure [Fatal]
  - Malabsorption [Fatal]
  - Ileal stenosis [Not Recovered/Not Resolved]
  - Abdominal pain [Not Recovered/Not Resolved]
  - Arteriovenous fistula occlusion [Unknown]
  - Enterocolonic fistula [Fatal]
  - Intestinal transit time decreased [Not Recovered/Not Resolved]
  - Mesenteric abscess [Recovered/Resolved]
  - Intestinal anastomosis [Fatal]
  - Cerebrovascular accident [Fatal]
  - Constipation [Not Recovered/Not Resolved]

NARRATIVE: CASE EVENT DATE: 2018
